FAERS Safety Report 14267924 (Version 1)
Quarter: 2017Q4

REPORT INFORMATION
  Report Type: Spontaneous
  Country: US (occurrence: US)
  Receive Date: 20171211
  Receipt Date: 20171211
  Transmission Date: 20180321
  Serious: No
  Sender: FDA-Public Use
  Company Number: US-ROCHE-1852201

PATIENT
  Age: 76 Year
  Sex: Female
  Weight: 62.65 kg

DRUGS (5)
  1. VALIUM [Suspect]
     Active Substance: DIAZEPAM
     Indication: ANXIETY
     Route: 065
  2. AMIODARONE [Concomitant]
     Active Substance: AMIODARONE
  3. SPIRONOLACTONE. [Concomitant]
     Active Substance: SPIRONOLACTONE
     Dosage: TAKE 1 TABLET IN THE AM AND 1/2 TABLET AT NIGHT
     Route: 065
     Dates: start: 20161030, end: 20161101
  4. ELIQUIS [Concomitant]
     Active Substance: APIXABAN
  5. ENALAPRIL [Concomitant]
     Active Substance: ENALAPRIL

REACTIONS (1)
  - Drug ineffective [Unknown]

NARRATIVE: CASE EVENT DATE: 20161031
